FAERS Safety Report 12493494 (Version 2)
Quarter: 2016Q3

REPORT INFORMATION
  Report Type: Spontaneous
  Country: FR (occurrence: FR)
  Receive Date: 20160623
  Receipt Date: 20160720
  Transmission Date: 20161109
  Serious: Yes (Death)
  Sender: FDA-Public Use
  Company Number: FR-ACTAVIS-2016-13195

PATIENT
  Age: 26 Year
  Sex: Male
  Weight: 90 kg

DRUGS (3)
  1. ZOLPIDEM [Concomitant]
     Active Substance: ZOLPIDEM\ZOLPIDEM TARTRATE
     Indication: PRODUCT USED FOR UNKNOWN INDICATION
     Dosage: UNK
     Route: 065
  2. MORPHINE (UNKNOWN) [Suspect]
     Active Substance: MORPHINE
     Indication: PRODUCT USED FOR UNKNOWN INDICATION
     Dosage: UNK
     Route: 065
  3. DUROGESIC [Suspect]
     Active Substance: FENTANYL
     Indication: PRODUCT USED FOR UNKNOWN INDICATION
     Dosage: 6 DUROGESIC PATCHES (5 AT 50 MCG/H AND 1 AT 25 MCG/H) CUMULATIVE DOSAGES OF 275 MCG/H
     Route: 003

REACTIONS (2)
  - Toxicity to various agents [Fatal]
  - Overdose [Fatal]
